FAERS Safety Report 7984042-5 (Version None)
Quarter: 2011Q4

REPORT INFORMATION
  Report Type: 
  Country: None (occurrence: None)
  Receive Date: 20111216
  Receipt Date: 20111205
  Transmission Date: 20120403
  Serious: Yes (Hospitalization)
  Sender: FDA-Public Use
  Company Number: FR-PFIZER INC-K201100611

PATIENT
  Age: 87 Year
  Sex: Female

DRUGS (9)
  1. TIMOPTOL [Concomitant]
     Dosage: UNK
  2. TOCO [Concomitant]
     Dosage: UNK
  3. FURADANTIN [Concomitant]
     Indication: URINARY TRACT INFECTION
     Dosage: UNK
     Dates: start: 20110321, end: 20110408
  4. LASIX [Suspect]
     Dosage: 40 MG, 1X/DAY
     Route: 048
     Dates: end: 20110329
  5. LASIX [Suspect]
     Dosage: 20 MG, 1X/DAY
     Dates: start: 20110405
  6. TANAKAN [Concomitant]
     Dosage: UNK
     Dates: end: 20110408
  7. RAMIPRIL [Suspect]
     Dosage: 2.5 MG, 1X/DAY
     Route: 048
     Dates: end: 20110329
  8. CETORNAN [Concomitant]
     Dosage: UNK
  9. FENOFIBRATE [Concomitant]
     Dosage: UNK

REACTIONS (4)
  - RENAL FAILURE ACUTE [None]
  - DEHYDRATION [None]
  - DRUG INTERACTION [None]
  - URINARY TRACT INFECTION [None]
